FAERS Safety Report 10035437 (Version 2)
Quarter: 2014Q2

REPORT INFORMATION
  Report Type: Spontaneous
  Country: US (occurrence: US)
  Receive Date: 20140325
  Receipt Date: 20140430
  Transmission Date: 20141212
  Serious: No
  Sender: FDA-Public Use
  Company Number: US-SUCAMPO PHARMA AMERICAS, INC-SPI201400201

PATIENT
  Sex: Female
  Weight: 64 kg

DRUGS (11)
  1. AMITIZA [Suspect]
     Indication: CONSTIPATION
     Dosage: 24 MCG, QD
     Route: 048
     Dates: start: 20140113
  2. UNKNOWN [Concomitant]
  3. UNKNOWN [Concomitant]
  4. UNKNOWN [Concomitant]
  5. REGLAN [Concomitant]
  6. UNKNOWN [Concomitant]
  7. UNKNOWN [Concomitant]
  8. ARTHROTEC [Concomitant]
  9. UNKNOWN [Concomitant]
  10. UNKNOWN [Concomitant]
  11. EXFORGE [Concomitant]

REACTIONS (1)
  - Dyspnoea [Not Recovered/Not Resolved]
